FAERS Safety Report 8054716-9 (Version None)
Quarter: 2012Q1

REPORT INFORMATION
  Report Type: 
  Country: None (occurrence: None)
  Receive Date: 20120119
  Receipt Date: 20120113
  Transmission Date: 20120608
  Serious: No
  Sender: FDA-Public Use
  Company Number: US-PFIZER INC-2012010940

PATIENT
  Sex: Male
  Weight: 78.458 kg

DRUGS (4)
  1. DILANTIN [Concomitant]
     Dosage: UNK, 1X/DAY
  2. TOVIAZ [Suspect]
     Indication: URINARY INCONTINENCE
     Dosage: 4 MG, 1X/DAY
     Route: 048
     Dates: start: 20120113
  3. TOVIAZ [Suspect]
     Indication: NOCTURIA
  4. PREDNISONE [Concomitant]
     Dosage: UNK, 1X/DAY

REACTIONS (1)
  - CONFUSIONAL STATE [None]
